FAERS Safety Report 15628952 (Version 1)
Quarter: 2018Q4

REPORT INFORMATION
  Report Type: Spontaneous
  Country: US (occurrence: US)
  Receive Date: 20181116
  Receipt Date: 20181116
  Transmission Date: 20190205
  Serious: No
  Sender: FDA-Public Use
  Company Number: US-PFIZER INC-2018468052

PATIENT
  Sex: Female

DRUGS (1)
  1. VIAGRA [Suspect]
     Active Substance: SILDENAFIL CITRATE
     Dosage: 100 MG, DAILY, [QUANTITY 60/DAY SUPPLY 30]

REACTIONS (2)
  - Product use issue [Unknown]
  - Hypertension [Unknown]
